FAERS Safety Report 16907937 (Version 2)
Quarter: 2019Q4

REPORT INFORMATION
  Report Type: Spontaneous
  Country: US (occurrence: US)
  Receive Date: 20191011
  Receipt Date: 20191024
  Transmission Date: 20200122
  Serious: No
  Sender: FDA-Public Use
  Company Number: US-GLAXOSMITHKLINE-US2019AMR178768

PATIENT
  Sex: Female

DRUGS (1)
  1. BREO ELLIPTA [Suspect]
     Active Substance: FLUTICASONE FUROATE\VILANTEROL TRIFENATATE
     Indication: PRODUCT USED FOR UNKNOWN INDICATION
     Dosage: UNK, 1D
     Route: 065
     Dates: start: 201903

REACTIONS (4)
  - Oropharyngeal pain [Unknown]
  - Tonsillitis [Not Recovered/Not Resolved]
  - Odynophagia [Unknown]
  - Pharyngeal erythema [Unknown]

NARRATIVE: CASE EVENT DATE: 2019
